FAERS Safety Report 7314057-1 (Version None)
Quarter: 2011Q1

REPORT INFORMATION
  Report Type: 
  Country: None (occurrence: None)
  Receive Date: 20110225
  Receipt Date: 20100419
  Transmission Date: 20110831
  Serious: No
  Sender: FDA-Public Use
  Company Number: US-MYLANLABS-2010S1006897

PATIENT
  Age: 18 Year
  Sex: Male

DRUGS (3)
  1. CLARAVIS [Suspect]
     Indication: ACNE
     Dates: start: 20091201, end: 20100101
  2. AMNESTEEM [Suspect]
     Indication: ACNE
     Route: 048
     Dates: start: 20100201, end: 20100401
  3. CLARAVIS [Suspect]
     Dates: start: 20100101, end: 20100201

REACTIONS (3)
  - ULCERATIVE KERATITIS [None]
  - EYE INFECTION BACTERIAL [None]
  - DRY EYE [None]
